FAERS Safety Report 24833084 (Version 1)
Quarter: 2025Q1

REPORT INFORMATION
  Report Type: Spontaneous
  Country: US (occurrence: US)
  Receive Date: 20250111
  Receipt Date: 20250111
  Transmission Date: 20250409
  Serious: No
  Sender: TEVA
  Company Number: US-TEVA-VS-3281442

PATIENT
  Sex: Male

DRUGS (1)
  1. UZEDY [Suspect]
     Active Substance: RISPERIDONE
     Indication: Schizophrenia
     Route: 058

REACTIONS (1)
  - Injection site rash [Unknown]

NARRATIVE: CASE EVENT DATE: 20241201
